FAERS Safety Report 21513445 (Version 1)
Quarter: 2022Q4

REPORT INFORMATION
  Report Type: Spontaneous
  Country: IN (occurrence: IN)
  Receive Date: 20221027
  Receipt Date: 20221027
  Transmission Date: 20230112
  Serious: Yes (Death, Life-Threatening, Hospitalization, Other)
  Sender: FDA-Public Use
  Company Number: IN-MLMSERVICE-2022101037597732

PATIENT
  Age: 45 Year
  Sex: Male

DRUGS (3)
  1. METHOTREXATE [Interacting]
     Active Substance: METHOTREXATE
     Indication: Psoriasis
  2. SULFAMETHOXAZOLE\TRIMETHOPRIM [Interacting]
     Active Substance: SULFAMETHOXAZOLE\TRIMETHOPRIM
     Indication: Psoriasis
  3. METHOTREXATE [Interacting]
     Active Substance: METHOTREXATE
     Indication: Psoriasis

REACTIONS (12)
  - Drug interaction [Fatal]
  - Staphylococcal infection [Fatal]
  - Toxicity to various agents [Fatal]
  - Internal haemorrhage [Fatal]
  - Enterococcal infection [Fatal]
  - Escherichia infection [Fatal]
  - Renal impairment [Fatal]
  - Pancytopenia [Fatal]
  - Myelosuppression [Fatal]
  - Self-medication [Fatal]
  - Mucocutaneous ulceration [Unknown]
  - Pseudomonas infection [Fatal]
